FAERS Safety Report 15574763 (Version 3)
Quarter: 2019Q1

REPORT INFORMATION
  Report Type: Spontaneous
  Country: DE (occurrence: DE)
  Receive Date: 20181101
  Receipt Date: 20190105
  Transmission Date: 20190417
  Serious: Yes (Life-Threatening, Hospitalization, Other)
  Sender: FDA-Public Use
  Company Number: DE-B.I. PHARMACEUTICALS,INC./RIDGEFIELD-2018-BI-053277

PATIENT
  Age: 75 Year
  Sex: Male
  Weight: 80 kg

DRUGS (2)
  1. PRADAXA [Suspect]
     Active Substance: DABIGATRAN ETEXILATE MESYLATE
     Indication: ATRIAL FIBRILLATION
     Route: 048
     Dates: end: 20180921
  2. PRADAXA [Suspect]
     Active Substance: DABIGATRAN ETEXILATE MESYLATE
     Indication: ISCHAEMIC STROKE

REACTIONS (10)
  - Stenosis [Recovered/Resolved]
  - Hemiplegia [Unknown]
  - Cerebral artery occlusion [Recovered/Resolved]
  - Disturbance in attention [Recovered/Resolved]
  - Cerebrovascular accident [Recovered/Resolved with Sequelae]
  - Dysarthria [Unknown]
  - Sensory processing disorder [Unknown]
  - Ill-defined disorder [Recovered/Resolved with Sequelae]
  - Atrial thrombosis [Unknown]
  - Pupillary disorder [Unknown]

NARRATIVE: CASE EVENT DATE: 20180921
